FAERS Safety Report 9483078 (Version 1)
Quarter: 2013Q3

REPORT INFORMATION
  Report Type: Spontaneous
  Country: US (occurrence: US)
  Receive Date: 20130828
  Receipt Date: 20130828
  Transmission Date: 20140515
  Serious: Yes (Other)
  Sender: FDA-Public Use
  Company Number: US-AMGEN-US097309

PATIENT
  Age: 64 Year
  Sex: Male

DRUGS (6)
  1. ENBREL [Suspect]
     Indication: PSORIASIS
     Dosage: 50 MG, 2 TIMES/WK
     Route: 058
     Dates: start: 20040901
  2. METHOTREXATE [Concomitant]
     Indication: PSORIASIS
     Dosage: 15 MG, QWK
     Route: 058
  3. ENALAPRIL MALEATE [Concomitant]
     Dosage: 10 MG, BID
  4. ACETYLSALICYLIC ACID [Concomitant]
     Dosage: 81 MG, QD
  5. AMLODIPINE BESILATE [Concomitant]
     Dosage: 5 MG, QD
  6. ESOMEPRAZOLE MAGNESIUM [Concomitant]
     Dosage: UNK UNK, QD

REACTIONS (4)
  - Heart rate irregular [Unknown]
  - Heart rate increased [Unknown]
  - Chest discomfort [Unknown]
  - Dyspnoea [Unknown]
